FAERS Safety Report 9265952 (Version 1)
Quarter: 2013Q2

REPORT INFORMATION
  Report Type: Report from Study
  Country: DE (occurrence: DE)
  Receive Date: 20130501
  Receipt Date: 20130501
  Transmission Date: 20140414
  Serious: Yes (Hospitalization)
  Sender: FDA-Public Use
  Company Number: DE-ABBOTT-13P-062-1082551-00

PATIENT
  Age: 68 Year
  Sex: Female
  Weight: 94 kg

DRUGS (10)
  1. HUMIRA [Suspect]
     Indication: RHEUMATOID ARTHRITIS
     Route: 058
     Dates: start: 20100420, end: 20120801
  2. SULFASALAZINE [Concomitant]
     Indication: RHEUMATOID ARTHRITIS
  3. GLUCOCORTICOIDS [Concomitant]
     Indication: RHEUMATOID ARTHRITIS
  4. COAPROVEL [Concomitant]
     Indication: HYPERTENSION
     Dosage: STRENGTH: 300/12.5 MG
  5. MOXONIDINE [Concomitant]
     Indication: HYPERTENSION
  6. SIMVASTATINE [Concomitant]
     Indication: HYPERLIPIDAEMIA
  7. METFORMIN [Concomitant]
     Indication: TYPE 2 DIABETES MELLITUS
  8. GLIMEPIRIDE [Concomitant]
     Indication: TYPE 2 DIABETES MELLITUS
  9. DOSS [Concomitant]
     Indication: OSTEOPOROSIS
  10. EUTHYROX [Concomitant]
     Indication: HYPOTHYROIDISM

REACTIONS (3)
  - Renal failure [Recovered/Resolved]
  - Diarrhoea [Recovered/Resolved]
  - Vomiting [Recovered/Resolved]
